FAERS Safety Report 6691857-2 (Version None)
Quarter: 2010Q2

REPORT INFORMATION
  Report Type: 
  Country: None (occurrence: None)
  Receive Date: 20100422
  Receipt Date: 20100413
  Transmission Date: 20101027
  Serious: Yes (Other)
  Sender: FDA-Public Use
  Company Number: PHHY2010RU24002

PATIENT
  Age: 48 Year
  Sex: Female

DRUGS (4)
  1. ACLASTA [Suspect]
     Dosage: 5 MG
     Route: 042
  2. CALCIUM D3 [Concomitant]
  3. LOGEST [Concomitant]
  4. YARINA [Concomitant]

REACTIONS (2)
  - JAUNDICE [None]
  - PYREXIA [None]
